FAERS Safety Report 7175761-1 (Version None)
Quarter: 2010Q4

REPORT INFORMATION
  Report Type: 
  Country: None (occurrence: None)
  Receive Date: 20101220
  Receipt Date: 20100401
  Transmission Date: 20110411
  Serious: No
  Sender: FDA-Public Use
  Company Number: US-AMGEN-TCS403332

PATIENT

DRUGS (1)
  1. ENBREL [Suspect]
     Indication: PSORIASIS
     Dosage: 50 MG, QWK
     Route: 058
     Dates: start: 20050901

REACTIONS (8)
  - DRUG INEFFECTIVE [None]
  - FATIGUE [None]
  - HYPOAESTHESIA [None]
  - LYMPHADENOPATHY [None]
  - PAIN IN EXTREMITY [None]
  - PARAESTHESIA [None]
  - SENSATION OF HEAVINESS [None]
  - WHITE BLOOD CELL COUNT INCREASED [None]
